FAERS Safety Report 13853944 (Version 4)
Quarter: 2017Q3

REPORT INFORMATION
  Report Type: Report from Study
  Country: DE (occurrence: DE)
  Receive Date: 20170810
  Receipt Date: 20170828
  Transmission Date: 20171127
  Serious: Yes (Life-Threatening)
  Sender: FDA-Public Use
  Company Number: PHHO2017DE011589

PATIENT
  Sex: Male
  Weight: 68 kg

DRUGS (5)
  1. LEE011 [Suspect]
     Active Substance: RIBOCICLIB
     Indication: MALIGNANT MELANOMA
     Dosage: 600 MG, QD
     Route: 048
     Dates: start: 20151112, end: 20170810
  2. MEK162 [Suspect]
     Active Substance: BINIMETINIB
     Dosage: 45 MG, BID
     Route: 048
     Dates: start: 20151112, end: 20170810
  3. PANTOPRAZOLE [Concomitant]
     Active Substance: PANTOPRAZOLE
     Indication: PRODUCT USED FOR UNKNOWN INDICATION
     Dosage: UNK
     Route: 065
  4. LGX818 [Suspect]
     Active Substance: ENCORAFENIB
     Indication: MALIGNANT MELANOMA
     Dosage: 200 MG, QD
     Route: 048
     Dates: start: 20151112, end: 20170810
  5. BISOPROLOL [Concomitant]
     Active Substance: BISOPROLOL
     Indication: HYPERTENSION
     Dosage: UNK
     Route: 065

REACTIONS (1)
  - Embolic cerebral infarction [Recovered/Resolved]

NARRATIVE: CASE EVENT DATE: 20170803
